FAERS Safety Report 8402595 (Version 5)
Quarter: 2015Q2

REPORT INFORMATION
  Report Type: Report from Study
  Country: PL (occurrence: PL)
  Receive Date: 20120213
  Receipt Date: 20150626
  Transmission Date: 20150821
  Serious: Yes (Other)
  Sender: FDA-Public Use
  Company Number: PL-UCBSA-048767

PATIENT
  Age: 31 Year
  Sex: Female
  Weight: 75 kg

DRUGS (8)
  1. AZATHIOPRINE. [Concomitant]
     Active Substance: AZATHIOPRINE
     Indication: CROHN^S DISEASE
     Dosage: 50 MG, 2X/DAY (BID)
     Route: 048
     Dates: start: 20080709
  2. FALVIT [Concomitant]
     Indication: CROHN^S DISEASE
     Dosage: 1 TABLET ONCE DAILY
     Route: 048
     Dates: start: 20080609
  3. ACIDUM FOLICUM [Concomitant]
     Active Substance: FOLIC ACID
     Indication: CROHN^S DISEASE
     Dosage: 15 MG, ONCE DAILY (QD)
     Route: 048
     Dates: start: 20080709
  4. ORAL CONTRACEPTIVE [Concomitant]
     Active Substance: UNSPECIFIED INGREDIENT
  5. FLIXONASE [Concomitant]
     Active Substance: FLUTICASONE PROPIONATE
     Indication: RHINITIS ALLERGIC
     Dosage: PUF
     Route: 045
     Dates: start: 20110905
  6. CERTOLIZUMAB PEGOL CD [Suspect]
     Active Substance: CERTOLIZUMAB PEGOL
     Indication: CROHN^S DISEASE
     Dosage: NO. OF DOSES RECEIVED:42
     Route: 058
     Dates: start: 20081201, end: 20111206
  7. SALOFALK [Concomitant]
     Active Substance: MESALAMINE
     Indication: CROHN^S DISEASE
     Dosage: 1 G, 2X/DAY (BID)
     Route: 048
     Dates: start: 20110528
  8. CALCIUM DOBESILATE [Concomitant]
     Active Substance: CALCIUM DOBESILATE
     Indication: CROHN^S DISEASE
     Dosage: 250 MG, 3X/DAY (TID)
     Route: 048
     Dates: start: 20090225

REACTIONS (2)
  - Abortion spontaneous [Recovered/Resolved with Sequelae]
  - Pregnancy on oral contraceptive [Recovered/Resolved with Sequelae]

NARRATIVE: CASE EVENT DATE: 20120104
